FAERS Safety Report 13143450 (Version 2)
Quarter: 2017Q1

REPORT INFORMATION
  Report Type: Report from Study
  Country: None (occurrence: ES)
  Receive Date: 20170124
  Receipt Date: 20170306
  Transmission Date: 20170428
  Serious: Yes (Hospitalization)
  Sender: FDA-Public Use
  Company Number: ES-ABBVIE-16K-144-1819710-00

PATIENT
  Sex: Female

DRUGS (7)
  1. DUODOPA [Suspect]
     Active Substance: CARBIDOPA\LEVODOPA
     Dosage: DOSE DECREASED
     Route: 050
     Dates: start: 2016
  2. AMANTADINE [Suspect]
     Active Substance: AMANTADINE
     Dosage: DOSE DECREASED
     Route: 065
     Dates: start: 2016
  3. DUODOPA [Suspect]
     Active Substance: CARBIDOPA\LEVODOPA
     Indication: PARKINSON^S DISEASE
     Route: 050
     Dates: start: 201609, end: 2016
  4. DULOXETINE. [Concomitant]
     Active Substance: DULOXETINE
     Indication: MENTAL DISORDER
  5. SEROQUEL [Concomitant]
     Active Substance: QUETIAPINE FUMARATE
     Indication: MENTAL DISORDER
  6. SINEMET RETARD [Concomitant]
     Indication: PRODUCT USED FOR UNKNOWN INDICATION
     Route: 048
  7. AMANTADINE [Suspect]
     Active Substance: AMANTADINE
     Indication: PARKINSON^S DISEASE
     Route: 065
     Dates: end: 2016

REACTIONS (14)
  - Back pain [Unknown]
  - Local swelling [Unknown]
  - Pain [Not Recovered/Not Resolved]
  - Dyskinesia [Unknown]
  - Hallucination [Not Recovered/Not Resolved]
  - Fractured coccyx [Unknown]
  - Tremor [Unknown]
  - Mental disorder [Recovering/Resolving]
  - Aggression [Recovered/Resolved]
  - Drug ineffective [Unknown]
  - Hypophagia [Unknown]
  - Obsessive thoughts [Not Recovered/Not Resolved]
  - Clumsiness [Unknown]
  - Depressed mood [Recovering/Resolving]

NARRATIVE: CASE EVENT DATE: 2016
